FAERS Safety Report 5833310-1 (Version None)
Quarter: 2008Q3

REPORT INFORMATION
  Report Type: 
  Country: None (occurrence: None)
  Receive Date: 20080804
  Receipt Date: 20080804
  Transmission Date: 20090109
  Serious: Yes (Life-Threatening, Disabling, Other)
  Sender: FDA-Public Use
  Company Number: None

PATIENT
  Sex: Male
  Weight: 104.3273 kg

DRUGS (1)
  1. FOSAMAX [Suspect]
     Indication: OSTEITIS DEFORMANS
     Dosage: 70 MG. 1-TAB WEEKLY
     Dates: start: 20050501

REACTIONS (4)
  - DYSPNOEA [None]
  - FRACTURE [None]
  - MUSCULAR WEAKNESS [None]
  - OSTEITIS DEFORMANS [None]
